FAERS Safety Report 4545725-2 (Version None)
Quarter: 2005Q1

REPORT INFORMATION
  Report Type: 
  Country: None (occurrence: None)
  Receive Date: 20050103
  Receipt Date: 20041213
  Transmission Date: 20050727
  Serious: Yes (Life-Threatening, Hospitalization, Other)
  Sender: FDA-Public Use
  Company Number: USA041285345

PATIENT
  Age: 57 Year
  Sex: Male

DRUGS (3)
  1. ZYPREXA [Suspect]
     Indication: PSYCHOTIC DISORDER
     Dates: start: 19990101, end: 20010101
  2. ZOLOFT [Concomitant]
  3. SERZONE [Concomitant]

REACTIONS (3)
  - BENIGN CARDIAC NEOPLASM [None]
  - CEREBROVASCULAR ACCIDENT [None]
  - INTRACARDIAC THROMBUS [None]
